FAERS Safety Report 9678464 (Version 1)
Quarter: 2013Q4

REPORT INFORMATION
  Report Type: Spontaneous
  Country: SE (occurrence: SE)
  Receive Date: 20131108
  Receipt Date: 20131108
  Transmission Date: 20140711
  Serious: Yes (Hospitalization)
  Sender: FDA-Public Use
  Company Number: SE-BRISTOL-MYERS SQUIBB COMPANY-19710136

PATIENT
  Age: 28 Year
  Sex: Female

DRUGS (3)
  1. ABATACEPT SUBQ INJECTION 125MG/ML [Suspect]
     Indication: RHEUMATOID ARTHRITIS
     Dosage: ORENCIA SOLUTION FOR INJECTION, PRE-FILLED SYRINGE 125 MG
     Route: 058
     Dates: start: 20130729, end: 20130917
  2. PLAQUENIL [Concomitant]
     Dosage: FILM-COATED TABLET 200 MG
  3. PREDNISOLONE [Concomitant]

REACTIONS (2)
  - Dizziness [Not Recovered/Not Resolved]
  - Syncope [Not Recovered/Not Resolved]
